FAERS Safety Report 6393922-6 (Version None)
Quarter: 2009Q4

REPORT INFORMATION
  Report Type: 
  Country: None (occurrence: None)
  Receive Date: 20091008
  Receipt Date: 20090929
  Transmission Date: 20100525
  Serious: Yes (Hospitalization)
  Sender: FDA-Public Use
  Company Number: GB-AMGEN-US364901

PATIENT
  Sex: Female

DRUGS (9)
  1. ENBREL [Suspect]
     Indication: DRUG USE FOR UNKNOWN INDICATION
     Route: 058
     Dates: start: 20090827, end: 20090907
  2. LANSOPRAZOLE [Concomitant]
     Route: 048
  3. LEVOTHYROXINE [Concomitant]
     Route: 048
  4. VERAPAMIL [Concomitant]
     Route: 048
  5. ENALAPRIL MALEATE [Concomitant]
     Route: 048
  6. COLCHICINE [Concomitant]
     Route: 048
  7. ESTRADERM [Concomitant]
     Indication: HORMONE REPLACEMENT THERAPY
     Dosage: UNKNOWN
     Route: 062
  8. PREDNISOLONE [Concomitant]
     Route: 048
  9. BENDROFLUAZIDE [Concomitant]
     Route: 048

REACTIONS (3)
  - CHEST PAIN [None]
  - DYSPNOEA [None]
  - SWOLLEN TONGUE [None]
